FAERS Safety Report 20919606 (Version 1)
Quarter: 2022Q2

REPORT INFORMATION
  Report Type: Spontaneous
  Country: US (occurrence: US)
  Receive Date: 20220606
  Receipt Date: 20220606
  Transmission Date: 20220720
  Serious: No
  Sender: FDA-Public Use
  Company Number: US-PFIZER INC-202200788640

PATIENT
  Age: 71 Year
  Sex: Female
  Weight: 54.43 kg

DRUGS (1)
  1. ESTRADIOL [Suspect]
     Active Substance: ESTRADIOL
     Dosage: UNK

REACTIONS (6)
  - Drug ineffective [Unknown]
  - Weight increased [Unknown]
  - Feeling abnormal [Unknown]
  - Fatigue [Unknown]
  - Cough [Unknown]
  - Seasonal allergy [Unknown]
